FAERS Safety Report 10511004 (Version 5)
Quarter: 2014Q4

REPORT INFORMATION
  Report Type: Report from Study
  Country: US (occurrence: US)
  Receive Date: 20141010
  Receipt Date: 20141223
  Transmission Date: 20150528
  Serious: Yes (Hospitalization, Other)
  Sender: FDA-Public Use
  Company Number: US-PFIZER INC-2014274236

PATIENT
  Age: 71 Year
  Sex: Male

DRUGS (6)
  1. CEFEPIME [Concomitant]
     Active Substance: CEFEPIME\CEFEPIME HYDROCHLORIDE
  2. DOXORUBICIN HCL [Suspect]
     Active Substance: DOXORUBICIN HYDROCHLORIDE
     Indication: SARCOMA
     Dosage: 135 MG, CYCLIC (C1D1)
     Route: 042
     Dates: start: 20140818, end: 20140818
  3. NEUPOGEN [Concomitant]
     Active Substance: FILGRASTIM
     Dosage: 480 ?G, ONCE DAILY, CYCLIC (C2D2-C2D11)
     Dates: start: 20140909, end: 20140918
  4. DOXORUBICIN HCL [Suspect]
     Active Substance: DOXORUBICIN HYDROCHLORIDE
     Dosage: 135 MG, CYCLIC (C2D1)
     Route: 042
     Dates: start: 20140908, end: 20140908
  5. NYSTATIN. [Concomitant]
     Active Substance: NYSTATIN
  6. LIDOCAINE. [Concomitant]
     Active Substance: LIDOCAINE

REACTIONS (2)
  - Pneumonia [Recovered/Resolved]
  - Febrile neutropenia [Recovered/Resolved]

NARRATIVE: CASE EVENT DATE: 20140914
